FAERS Safety Report 4660546-8 (Version None)
Quarter: 2005Q2

REPORT INFORMATION
  Report Type: 
  Country: None (occurrence: None)
  Receive Date: 20050512
  Receipt Date: 20050404
  Transmission Date: 20051028
  Serious: Yes (Hospitalization)
  Sender: FDA-Public Use
  Company Number: FR-BRISTOL-MYERS SQUIBB COMPANY-12921656

PATIENT
  Age: 75 Year
  Sex: Female
  Weight: 85 kg

DRUGS (5)
  1. APROVEL TABS 150 MG [Suspect]
     Route: 048
  2. INNOHEP [Suspect]
     Dates: start: 20040701, end: 20040704
  3. VIOXX [Suspect]
  4. MOPRAL [Suspect]
  5. FUMAFER [Suspect]

REACTIONS (2)
  - DEEP VEIN THROMBOSIS [None]
  - THERAPEUTIC RESPONSE DECREASED [None]
